FAERS Safety Report 16764060 (Version 1)
Quarter: 2019Q3

REPORT INFORMATION
  Report Type: Spontaneous
  Country: IE (occurrence: IE)
  Receive Date: 20190902
  Receipt Date: 20190902
  Transmission Date: 20191005
  Serious: Yes (Other)
  Sender: FDA-Public Use
  Company Number: IE-ASTRAZENECA-2019SF24952

PATIENT
  Age: 72 Year
  Sex: Female

DRUGS (5)
  1. ELTROXIN [Concomitant]
     Active Substance: LEVOTHYROXINE
     Dosage: 25.0UG UNKNOWN
  2. OXYCONTIN [Concomitant]
     Active Substance: OXYCODONE HYDROCHLORIDE
     Dosage: 10.0MG UNKNOWN
  3. MOVENTIG [Suspect]
     Active Substance: NALOXEGOL OXALATE
     Dosage: 25.0MG UNKNOWN
     Route: 048
     Dates: start: 20190801, end: 201908
  4. MICARDISPLUS [Concomitant]
     Active Substance: HYDROCHLOROTHIAZIDE\TELMISARTAN
     Dosage: 40.0MG UNKNOWN
  5. ASPIRIN. [Concomitant]
     Active Substance: ASPIRIN

REACTIONS (7)
  - Abdominal pain upper [Recovered/Resolved]
  - Chest pain [Recovered/Resolved]
  - Musculoskeletal pain [Recovered/Resolved]
  - Musculoskeletal chest pain [Recovered/Resolved]
  - Asthenia [Recovered/Resolved]
  - Fatigue [Recovered/Resolved]
  - Diarrhoea [Recovered/Resolved]

NARRATIVE: CASE EVENT DATE: 20190801
